FAERS Safety Report 4560644-3 (Version None)
Quarter: 2005Q1

REPORT INFORMATION
  Report Type: 
  Country: None (occurrence: None)
  Receive Date: 20050121
  Receipt Date: 20050107
  Transmission Date: 20050727
  Serious: Yes (Death, Hospitalization)
  Sender: FDA-Public Use
  Company Number: 2003123341

PATIENT
  Age: 20 Year
  Sex: Female

DRUGS (4)
  1. EPANUTIN (PHENYTOIN SODIUM) (PHENYTOIN SODIUM) [Suspect]
     Indication: THERAPEUTIC AGENT TOXICITY
  2. ACETAMINOPHEN [Suspect]
     Indication: THERAPEUTIC AGENT TOXICITY
     Dosage: ORAL
     Route: 048
     Dates: start: 19980901
  3. PONSTAN (MEFANAMIC ACID) [Suspect]
     Indication: THERAPEUTIC AGENT TOXICITY
  4. SALBUTAMOL (SALBUTAMOL) [Suspect]
     Indication: POISONING

REACTIONS (7)
  - CONVULSION [None]
  - ENCEPHALOPATHY [None]
  - HEPATIC FAILURE [None]
  - OVERDOSE [None]
  - PYREXIA [None]
  - RENAL IMPAIRMENT [None]
  - THERAPEUTIC RESPONSE INCREASED [None]
